FAERS Safety Report 12408267 (Version 1)
Quarter: 2016Q2

REPORT INFORMATION
  Report Type: Spontaneous
  Country: GB (occurrence: GB)
  Receive Date: 20160526
  Receipt Date: 20160526
  Transmission Date: 20160815
  Serious: Yes (Other)
  Sender: FDA-Public Use
  Company Number: GB-ROSEMONT-16GB016197

PATIENT
  Age: 56 Year
  Sex: Male

DRUGS (2)
  1. PARACETAMOL 12063/0006 500 MG [Suspect]
     Active Substance: ACETAMINOPHEN
     Indication: PRODUCT USED FOR UNKNOWN INDICATION
     Dosage: 120 DF, UNK
     Route: 065
  2. PRIADEL                            /00033702/ [Suspect]
     Active Substance: LITHIUM CARBONATE
     Indication: BIPOLAR DISORDER

REACTIONS (2)
  - Suicide attempt [Unknown]
  - Overdose [Unknown]
